FAERS Safety Report 6177435-2 (Version None)
Quarter: 2009Q2

REPORT INFORMATION
  Report Type: 
  Country: None (occurrence: None)
  Receive Date: 20090501
  Receipt Date: 20090501
  Transmission Date: 20091009
  Serious: Yes (Hospitalization)
  Sender: FDA-Public Use
  Company Number: None

PATIENT
  Sex: Male
  Weight: 84.3 kg

DRUGS (12)
  1. TACROLIMUS [Suspect]
     Indication: HEART TRANSPLANT
     Dosage: 6.5MG PO QAM; 6MG PO QPM
     Route: 048
     Dates: start: 20081101
  2. INSULIN ASPART [Concomitant]
  3. ASPIRIN [Concomitant]
  4. LANSOPRAZOLE [Concomitant]
  5. NYSTATIN [Concomitant]
  6. PRAVASTATIN [Concomitant]
  7. PREDNISONE [Concomitant]
  8. ONDANSETRON [Concomitant]
  9. HEPARIN [Concomitant]
  10. MYCOPHENOLATE MOFETIL [Concomitant]
  11. TRIMETHOPRIM + SULFAMETHOXAZOLE [Concomitant]
  12. VANGANCICLOVIR [Concomitant]

REACTIONS (4)
  - DIARRHOEA [None]
  - NAUSEA [None]
  - RENAL FAILURE ACUTE [None]
  - VOMITING [None]
